FAERS Safety Report 17741675 (Version 1)
Quarter: 2020Q2

REPORT INFORMATION
  Report Type: Report from Study
  Country: US (occurrence: US)
  Receive Date: 20200504
  Receipt Date: 20200504
  Transmission Date: 20200714
  Serious: Yes (Other)
  Sender: FDA-Public Use
  Company Number: US-MYLANLABS-2020M1044082

PATIENT
  Sex: Female
  Weight: 78 kg

DRUGS (1)
  1. GLATIRAMER ACETATE INJECTION [Suspect]
     Active Substance: GLATIRAMER ACETATE
     Indication: RELAPSING-REMITTING MULTIPLE SCLEROSIS
     Dosage: 40 MILLIGRAM, 3XW (3 TIMES PER WEEK)
     Route: 058

REACTIONS (7)
  - Multiple sclerosis relapse [Unknown]
  - Muscle spasticity [Unknown]
  - Psychiatric symptom [Unknown]
  - Pain [Unknown]
  - Tremor [Unknown]
  - Drug ineffective [Unknown]
  - Speech disorder [Unknown]
